FAERS Safety Report 21166725 (Version 1)
Quarter: 2022Q3

REPORT INFORMATION
  Report Type: Report from Study
  Country: FR (occurrence: FR)
  Receive Date: 20220803
  Receipt Date: 20220803
  Transmission Date: 20221027
  Serious: Yes (Life-Threatening, Hospitalization, Other)
  Sender: FDA-Public Use
  Company Number: FR-SERVIER-S22007976

PATIENT

DRUGS (10)
  1. PEGASPARGASE [Suspect]
     Active Substance: PEGASPARGASE
     Indication: Acute lymphocytic leukaemia
     Dosage: 675 IU, D4
     Route: 042
     Dates: start: 20220425, end: 20220611
  2. DEXAMETHASONE [Suspect]
     Active Substance: DEXAMETHASONE
     Indication: Acute lymphocytic leukaemia
     Dosage: 5.5 MG, D1-D7, D15-D21
     Route: 048
     Dates: start: 20220422, end: 20220611
  3. VINCRISTINE [Suspect]
     Active Substance: VINCRISTINE
     Indication: Acute lymphocytic leukaemia
     Dosage: 0.8 MG, D1, D8, D15, D22
     Route: 042
     Dates: start: 20220422, end: 20220611
  4. DOXORUBICIN [Suspect]
     Active Substance: DOXORUBICIN
     Indication: Acute lymphocytic leukaemia
     Dosage: 16 MG, D1, D8, D15, D22
     Route: 042
     Dates: start: 20220422, end: 20220611
  5. THIOGUANINE [Suspect]
     Active Substance: THIOGUANINE
     Indication: Acute lymphocytic leukaemia
     Dosage: 40 MG, D29-D42
     Route: 048
     Dates: start: 20220422, end: 20220611
  6. CYCLOPHOSPHAMIDE [Suspect]
     Active Substance: CYCLOPHOSPHAMIDE
     Indication: Acute lymphocytic leukaemia
     Dosage: 540 MG, D29
     Route: 042
     Dates: start: 20220422, end: 20220611
  7. METHOTREXATE [Suspect]
     Active Substance: METHOTREXATE
     Indication: Acute lymphocytic leukaemia
     Dosage: 8 MG, D4, D30
     Route: 037
     Dates: start: 20220422, end: 20220611
  8. CYTARABINE [Suspect]
     Active Substance: CYTARABINE
     Indication: Acute lymphocytic leukaemia
     Dosage: 20 MG, D4, D30
     Route: 037
     Dates: start: 20220422, end: 20220611
  9. CYTARABINE [Suspect]
     Active Substance: CYTARABINE
     Dosage: 40 MG, D31-D31, D38-D41
     Route: 042
     Dates: start: 20220422, end: 20220611
  10. HYDROCORTISONE [Suspect]
     Active Substance: HYDROCORTISONE
     Indication: Acute lymphocytic leukaemia
     Dosage: 10 MG, D4, D30
     Route: 037
     Dates: start: 20220422, end: 20220611

REACTIONS (4)
  - Septic shock [Recovered/Resolved]
  - Pyelonephritis [Recovered/Resolved]
  - Pure white cell aplasia [Recovered/Resolved]
  - Hyperbilirubinaemia [Recovered/Resolved]

NARRATIVE: CASE EVENT DATE: 20220502
